FAERS Safety Report 11896274 (Version 1)
Quarter: 2016Q1

REPORT INFORMATION
  Report Type: Spontaneous
  Country: US (occurrence: US)
  Receive Date: 20160107
  Receipt Date: 20160107
  Transmission Date: 20160526
  Serious: Yes (Hospitalization)
  Sender: FDA-Public Use
  Company Number: US-ROCHE-1509331

PATIENT
  Age: 52 Year
  Sex: Male

DRUGS (2)
  1. RITUXAN [Suspect]
     Active Substance: RITUXIMAB
     Indication: NON-HODGKIN^S LYMPHOMA STAGE IV
     Dosage: 4 INFUSIONS OVER 4 WEEKS, STANDARD DOSE
     Route: 042
     Dates: start: 200306
  2. RITUXAN [Suspect]
     Active Substance: RITUXIMAB
     Dosage: 4 INFUSIONS IN OVER 4 WEEKS, MAINTENANCE
     Route: 042
     Dates: start: 2006

REACTIONS (10)
  - White blood cell count decreased [Not Recovered/Not Resolved]
  - Abdominal discomfort [Not Recovered/Not Resolved]
  - Extrasystoles [Recovering/Resolving]
  - Palpitations [Not Recovered/Not Resolved]
  - Influenza [Recovered/Resolved]
  - Respiratory disorder [Not Recovered/Not Resolved]
  - Tinnitus [Not Recovered/Not Resolved]
  - Urticaria [Recovered/Resolved]
  - Dyspnoea [Recovered/Resolved]
  - Insomnia [Not Recovered/Not Resolved]

NARRATIVE: CASE EVENT DATE: 200306
